FAERS Safety Report 8995159 (Version 1)
Quarter: 2013Q1

REPORT INFORMATION
  Report Type: Spontaneous
  Country: US (occurrence: US)
  Receive Date: 20130102
  Receipt Date: 20130102
  Transmission Date: 20140127
  Serious: No
  Sender: FDA-Public Use
  Company Number: US-009507513-1212USA011284

PATIENT
  Sex: Male

DRUGS (5)
  1. PEGINTRON [Suspect]
     Indication: HEPATITIS C
     Dosage: 120 MICROGRAM, QW, 3 CAPSULES IN THE MORNING AND 2 CAPSULES IN THE EVENING
     Route: 058
     Dates: start: 20120916, end: 201211
  2. PEGINTRON [Suspect]
     Dosage: 80 MICROGRAM, QW, 3 CAPSULES IN THE MORNING AND 2 CAPSULES IN THE EVENING
     Route: 058
     Dates: start: 201211
  3. REBETOL [Suspect]
     Dosage: 5 DF, QW, 3 CAPSULES IN THE MORNING AND 2 CAPSULES IN THE EVENING
     Route: 048
     Dates: start: 20120916
  4. VICTRELIS [Suspect]
     Dosage: 4 DF, Q8H
     Route: 048
     Dates: start: 20121014
  5. PROPRANOLOL HYDROCHLORIDE [Concomitant]
     Dosage: 20 MG, QD

REACTIONS (6)
  - Feeling hot [Recovered/Resolved]
  - Pain [Recovered/Resolved]
  - Pyrexia [Recovered/Resolved]
  - Decreased appetite [Recovered/Resolved]
  - T-cell depletion [Unknown]
  - Viral load increased [Unknown]
